FAERS Safety Report 4827342-X (Version None)
Quarter: 2005Q4

REPORT INFORMATION
  Report Type: 
  Country: None (occurrence: None)
  Receive Date: 20051110
  Receipt Date: 20051102
  Transmission Date: 20060501
  Serious: Yes (Other)
  Sender: FDA-Public Use
  Company Number: AT-2005-023134

PATIENT
  Sex: Female

DRUGS (2)
  1. MIRENA [Suspect]
     Dosage: 20 UG/DAY, CONT, INTRA-UTERINE
     Route: 015
     Dates: start: 20030101
  2. LEVOTHYROXINE SODIUM [Concomitant]

REACTIONS (2)
  - LIPOPROTEIN (A) INCREASED [None]
  - MYOCARDIAL INFARCTION [None]
